FAERS Safety Report 9989055 (Version 2)
Quarter: 2014Q1

REPORT INFORMATION
  Report Type: Report from Study
  Country: US (occurrence: US)
  Receive Date: 20140310
  Receipt Date: 20140310
  Transmission Date: 20141002
  Serious: No
  Sender: FDA-Public Use
  Company Number: US-ABBVIE-13P-163-1107952-00

PATIENT
  Age: 46 Year
  Sex: Female
  Weight: 70.37 kg

DRUGS (5)
  1. HUMIRA [Suspect]
     Indication: PSORIASIS
     Dosage: LOADING DOSE
     Dates: start: 20130614, end: 20130614
  2. HUMIRA [Suspect]
     Dosage: LOADING DOSE
     Dates: start: 20130621, end: 20130621
  3. HUMIRA [Suspect]
  4. ESTEROL [Concomitant]
     Indication: HORMONE LEVEL ABNORMAL
  5. ESTRADIOL [Concomitant]
     Indication: HORMONE REPLACEMENT THERAPY

REACTIONS (9)
  - Laceration [Unknown]
  - Local swelling [Unknown]
  - Pain in extremity [Unknown]
  - Psoriasis [Recovered/Resolved]
  - Injection site mass [Not Recovered/Not Resolved]
  - Motor dysfunction [Not Recovered/Not Resolved]
  - Local swelling [Not Recovered/Not Resolved]
  - Pain in extremity [Not Recovered/Not Resolved]
  - Infection [Not Recovered/Not Resolved]
